FAERS Safety Report 5201732-8 (Version None)
Quarter: 2007Q1

REPORT INFORMATION
  Report Type: 
  Country: None (occurrence: None)
  Receive Date: 20070104
  Receipt Date: 20061221
  Transmission Date: 20070707
  Serious: Yes (Disabling)
  Sender: FDA-Public Use
  Company Number: 2006US002977

PATIENT
  Age: 60 Year
  Sex: Male

DRUGS (3)
  1. AMEVIVE [Suspect]
     Indication: PSORIASIS
     Dosage: SEE IMAGE
     Route: 030
     Dates: start: 20050201, end: 20050601
  2. AMEVIVE [Suspect]
     Indication: PSORIASIS
     Dosage: SEE IMAGE
     Route: 030
     Dates: start: 20040101, end: 20060501
  3. AMEVIVE [Suspect]
     Indication: PSORIASIS
     Dosage: SEE IMAGE
     Route: 030
     Dates: start: 20060901

REACTIONS (1)
  - DEMENTIA [None]
